FAERS Safety Report 8601782 (Version 2)
Quarter: 2013Q1

REPORT INFORMATION
  Report Type: Spontaneous
  Country: US (occurrence: US)
  Receive Date: 20120606
  Receipt Date: 20130325
  Transmission Date: 20140127
  Serious: Yes (Other)
  Sender: FDA-Public Use
  Company Number: US-US-EMD SERONO, INC.-7136634

PATIENT
  Sex: Male
  Weight: 68 kg

DRUGS (5)
  1. EGRIFTA [Suspect]
     Indication: LIPODYSTROPHY ACQUIRED
     Route: 058
     Dates: start: 201105, end: 20111004
  2. EPZICOM [Concomitant]
     Indication: HIV INFECTION
     Dates: start: 2009
  3. KALETRA [Concomitant]
     Indication: HIV INFECTION
     Dates: start: 2009
  4. LIPITOR [Concomitant]
     Indication: BLOOD CHOLESTEROL INCREASED
     Dates: start: 2009
  5. DIOVAN [Concomitant]
     Indication: HYPERTENSION
     Dates: start: 2009

REACTIONS (1)
  - Squamous cell carcinoma [Recovered/Resolved]
